FAERS Safety Report 16022753 (Version 2)
Quarter: 2019Q2

REPORT INFORMATION
  Report Type: Report from Study
  Country: US (occurrence: US)
  Receive Date: 20190301
  Receipt Date: 20190415
  Transmission Date: 20190711
  Serious: Yes (Other)
  Sender: FDA-Public Use
  Company Number: US-JNJFOC-20181200506

PATIENT
  Sex: Male

DRUGS (11)
  1. OMEPRAZOLE. [Concomitant]
     Active Substance: OMEPRAZOLE
  2. ACYCLOVIR. [Concomitant]
     Active Substance: ACYCLOVIR
  3. IMBRUVICA [Suspect]
     Active Substance: IBRUTINIB
     Indication: LYMPHOCYTIC LEUKAEMIA
     Route: 048
     Dates: start: 20181126
  4. GLUCOSAMINE [Concomitant]
     Active Substance: GLUCOSAMINE
  5. IMBRUVICA [Suspect]
     Active Substance: IBRUTINIB
     Indication: LYMPHOCYTIC LEUKAEMIA
     Route: 048
     Dates: start: 20181116
  6. VITAMIN D NOS [Concomitant]
     Active Substance: VITAMIN D NOS
  7. IMBRUVICA [Suspect]
     Active Substance: IBRUTINIB
     Indication: B-CELL SMALL LYMPHOCYTIC LYMPHOMA
     Route: 048
     Dates: start: 20181115
  8. IMBRUVICA [Suspect]
     Active Substance: IBRUTINIB
     Indication: B-CELL SMALL LYMPHOCYTIC LYMPHOMA
     Route: 048
     Dates: start: 20181126
  9. IMBRUVICA [Suspect]
     Active Substance: IBRUTINIB
     Indication: LYMPHOCYTIC LEUKAEMIA
     Route: 048
     Dates: start: 20181115
  10. IMBRUVICA [Suspect]
     Active Substance: IBRUTINIB
     Indication: B-CELL SMALL LYMPHOCYTIC LYMPHOMA
     Route: 048
     Dates: start: 20181116
  11. MULTIVITAMINS [Concomitant]
     Active Substance: VITAMINS

REACTIONS (12)
  - Haemorrhage subcutaneous [Not Recovered/Not Resolved]
  - Blister [Unknown]
  - Headache [Unknown]
  - Blood blister [Unknown]
  - Skin swelling [Unknown]
  - Wound [Unknown]
  - Oropharyngeal pain [Unknown]
  - Contusion [Unknown]
  - Stomatitis [Unknown]
  - White blood cell count increased [Unknown]
  - Pain of skin [Not Recovered/Not Resolved]
  - Bleeding time prolonged [Unknown]
